FAERS Safety Report 6466038-8 (Version None)
Quarter: 2009Q4

REPORT INFORMATION
  Report Type: 
  Country: None (occurrence: None)
  Receive Date: 20091202
  Receipt Date: 20091124
  Transmission Date: 20100525
  Serious: Yes (Other)
  Sender: FDA-Public Use
  Company Number: US-JNJFOC-20091200165

PATIENT
  Age: 50 Year
  Sex: Male

DRUGS (5)
  1. DURAGESIC-100 [Suspect]
     Indication: DRUG USE FOR UNKNOWN INDICATION
     Route: 062
  2. TYLENOL W/ CODEINE NO. 4 [Suspect]
     Indication: DRUG USE FOR UNKNOWN INDICATION
  3. DILAUDID [Suspect]
     Indication: DRUG USE FOR UNKNOWN INDICATION
     Route: 042
  4. EFFEXOR [Concomitant]
  5. PROTONIX [Concomitant]

REACTIONS (2)
  - ENCEPHALOPATHY [None]
  - LETHARGY [None]
